FAERS Safety Report 10404410 (Version 2)
Quarter: 2014Q2

REPORT INFORMATION
  Report Type: Spontaneous
  Country: US (occurrence: None)
  Receive Date: 20140214
  Receipt Date: 20140625
  Transmission Date: 20141212
  Serious: No
  Sender: FDA-Public Use
  Company Number: A-NJ2014-93468

PATIENT
  Age: 83 Year
  Sex: Female

DRUGS (3)
  1. OPSUMIT (MACITENTAN) [Suspect]
     Indication: PULMONARY ARTERIAL HYPERTENSION
     Route: 048
     Dates: start: 201311, end: 20131219
  2. REVATIO (SILDENAFIL CITRATE) [Concomitant]
  3. WARFARIN [Concomitant]

REACTIONS (3)
  - Malaise [None]
  - Oedema [None]
  - Drug intolerance [None]
